FAERS Safety Report 14226464 (Version 3)
Quarter: 2018Q1

REPORT INFORMATION
  Report Type: Spontaneous
  Country: IT (occurrence: IT)
  Receive Date: 20171127
  Receipt Date: 20180125
  Transmission Date: 20180508
  Serious: Yes (Other)
  Sender: FDA-Public Use
  Company Number: IT-PFIZER INC-2017506027

PATIENT
  Age: 66 Year
  Sex: Female

DRUGS (1)
  1. PANTORC [Suspect]
     Active Substance: PANTOPRAZOLE SODIUM
     Indication: GASTROOESOPHAGEAL REFLUX DISEASE
     Dosage: 20 MG, QD
     Route: 048

REACTIONS (2)
  - Lip oedema [Recovering/Resolving]
  - Lip pruritus [Recovering/Resolving]

NARRATIVE: CASE EVENT DATE: 20171114
